FAERS Safety Report 6325112-7 (Version None)
Quarter: 2009Q3

REPORT INFORMATION
  Report Type: 
  Country: None (occurrence: None)
  Receive Date: 20090824
  Receipt Date: 20090702
  Transmission Date: 20100115
  Serious: No
  Sender: FDA-Public Use
  Company Number: US-ABBOTT-09P-163-0583689-00

PATIENT
  Sex: Female
  Weight: 101.7 kg

DRUGS (7)
  1. NIASPAN [Suspect]
     Indication: BLOOD CHOLESTEROL INCREASED
     Route: 048
     Dates: start: 20090627
  2. NIASPAN [Suspect]
     Indication: BLOOD TRIGLYCERIDES INCREASED
  3. HUMALOG [Concomitant]
     Indication: TYPE 1 DIABETES MELLITUS
     Route: 050
  4. LANTUS [Concomitant]
     Indication: TYPE 1 DIABETES MELLITUS
     Dosage: INSULIN
     Route: 050
  5. NEXIUM [Concomitant]
     Indication: GASTROOESOPHAGEAL REFLUX DISEASE
     Route: 048
  6. REGLAN [Concomitant]
     Indication: IMPAIRED GASTRIC EMPTYING
  7. METOPROLOL [Concomitant]
     Indication: TACHYCARDIA
     Route: 048

REACTIONS (4)
  - DRUG DOSE OMISSION [None]
  - FLUSHING [None]
  - MUSCLE TIGHTNESS [None]
  - PRURITUS [None]
